FAERS Safety Report 5723092-6 (Version None)
Quarter: 2008Q2

REPORT INFORMATION
  Report Type: 
  Country: None (occurrence: None)
  Receive Date: 20080428
  Receipt Date: 20080415
  Transmission Date: 20081010
  Serious: Yes (Hospitalization)
  Sender: FDA-Public Use
  Company Number: 233581J08USA

PATIENT
  Age: 68 Year
  Sex: Female
  Weight: 58.9676 kg

DRUGS (8)
  1. REBIF [Suspect]
     Indication: MULTIPLE SCLEROSIS
     Dosage: 44 MCG, 3 IN 1 WEEKS, SUBCUTANEOUS
     Route: 058
     Dates: start: 20071015
  2. PREMARIN [Suspect]
     Indication: OESTROGEN DEFICIENCY
     Dates: start: 19700101, end: 20080327
  3. BACLOFEN [Concomitant]
  4. TRAZODONE HCL [Concomitant]
  5. LISINOPRIL [Concomitant]
  6. HYDROCHLOROTHIAZIDE [Concomitant]
  7. LEVOTHYROXINE SODIUM [Concomitant]
  8. IRON SUPPLEMENT(IRON) [Concomitant]

REACTIONS (5)
  - ANAEMIA [None]
  - HYPERTENSION [None]
  - HYPOTHYROIDISM [None]
  - MULTIPLE SCLEROSIS [None]
  - THROMBOSIS [None]
